FAERS Safety Report 8322198-5 (Version None)
Quarter: 2012Q2

REPORT INFORMATION
  Report Type: 
  Country: None (occurrence: None)
  Receive Date: 20120430
  Receipt Date: 20110621
  Transmission Date: 20120825
  Serious: No
  Sender: FDA-Public Use
  Company Number: US-COVIDIEN/TYCO HEALTHCARE/MALLINCKRODT-T201101269

PATIENT
  Sex: Male
  Weight: 65.76 kg

DRUGS (6)
  1. PLAVIX [Concomitant]
     Indication: ANTICOAGULANT THERAPY
     Dosage: UNK
  2. SIMVASTATIN [Concomitant]
     Indication: BLOOD CHOLESTEROL INCREASED
     Dosage: UNK
  3. HYDROCODONE BITARTRATE + ACETAMINOPHEN [Suspect]
     Indication: NECK PAIN
     Dosage: 10/325, TWO TABLETS BID
     Route: 048
     Dates: start: 20110523
  4. GABAPENTIN [Concomitant]
     Indication: ABDOMINAL PAIN UPPER
     Dosage: UNK
  5. PROMETHAZINE [Concomitant]
     Indication: NAUSEA
     Dosage: UNK
  6. XANAX [Concomitant]
     Indication: ANXIETY

REACTIONS (4)
  - NIGHTMARE [None]
  - INSOMNIA [None]
  - FEELING ABNORMAL [None]
  - INCORRECT DOSE ADMINISTERED [None]
